FAERS Safety Report 8052841-X (Version None)
Quarter: 2012Q1

REPORT INFORMATION
  Report Type: 
  Country: None (occurrence: None)
  Receive Date: 20120118
  Receipt Date: 20120116
  Transmission Date: 20120608
  Serious: Yes (Hospitalization)
  Sender: FDA-Public Use
  Company Number: PHHY2011US57685

PATIENT
  Sex: Male
  Weight: 65.63 kg

DRUGS (1)
  1. EXJADE [Suspect]
     Indication: IRON OVERLOAD
     Dosage: 1000 MG, DAILY
     Route: 048
     Dates: start: 20101124, end: 20111224

REACTIONS (3)
  - PNEUMONIA [None]
  - BRONCHITIS [None]
  - THROMBOSIS [None]
